FAERS Safety Report 16375485 (Version 1)
Quarter: 2019Q2

REPORT INFORMATION
  Report Type: Spontaneous
  Country: GB (occurrence: GB)
  Receive Date: 20190531
  Receipt Date: 20190531
  Transmission Date: 20190711
  Serious: Yes (Other)
  Sender: FDA-Public Use
  Company Number: GB-SA-2019SA146461

PATIENT
  Age: 52 Year
  Sex: Female

DRUGS (6)
  1. ALEMTUZUMAB [Suspect]
     Active Substance: ALEMTUZUMAB
     Dosage: 12 MG, UNK
     Route: 041
  2. LIDOCAINE. [Concomitant]
     Active Substance: LIDOCAINE
     Dosage: UNK, UNK, UNK
     Route: 065
  3. ALEMTUZUMAB [Suspect]
     Active Substance: ALEMTUZUMAB
     Indication: RELAPSING-REMITTING MULTIPLE SCLEROSIS
     Dosage: 12 MG, UNK
     Route: 041
     Dates: start: 20160110
  4. DIAZEPAM. [Concomitant]
     Active Substance: DIAZEPAM
     Dosage: UNK, UNK, UNK
     Route: 065
  5. MULTIVITAMIN [VITAMINS NOS] [Concomitant]
     Dosage: UNK UNK, UNK
     Route: 065
  6. GABAPENTIN. [Concomitant]
     Active Substance: GABAPENTIN
     Dosage: UNK, UNK

REACTIONS (1)
  - Thyroid disorder [Not Recovered/Not Resolved]

NARRATIVE: CASE EVENT DATE: 201805
